FAERS Safety Report 17362460 (Version 1)
Quarter: 2020Q1

REPORT INFORMATION
  Report Type: Report from Study
  Country: US (occurrence: US)
  Receive Date: 20200203
  Receipt Date: 20200203
  Transmission Date: 20200409
  Serious: Yes (Hospitalization)
  Sender: FDA-Public Use
  Company Number: US-PUMA BIOTECHNOLOGY, LTD.-2020US000107

PATIENT

DRUGS (3)
  1. NERLYNX [Suspect]
     Active Substance: NERATINIB
     Dosage: 240 MG, DAILY
     Route: 048
     Dates: start: 202001
  2. NERLYNX [Suspect]
     Active Substance: NERATINIB
     Indication: BREAST CANCER METASTATIC
     Dosage: 80 MG (3 TABLETS), DAILY
     Route: 048
     Dates: start: 201912, end: 20200106
  3. NERLYNX [Suspect]
     Active Substance: NERATINIB
     Dosage: 120 MG (3 TABLETS), DAILY
     Route: 048
     Dates: start: 20200107, end: 202001

REACTIONS (6)
  - Nausea [Unknown]
  - Headache [Unknown]
  - Hospitalisation [Unknown]
  - Off label use [Unknown]
  - Breast cancer metastatic [Unknown]
  - Drug titration [Unknown]

NARRATIVE: CASE EVENT DATE: 202001
